FAERS Safety Report 9388939 (Version 2)
Quarter: 2013Q4

REPORT INFORMATION
  Report Type: Spontaneous
  Country: US (occurrence: US)
  Receive Date: 20130708
  Receipt Date: 20131115
  Transmission Date: 20140711
  Serious: Yes (Hospitalization)
  Sender: FDA-Public Use
  Company Number: US-B.I. PHARMACEUTICALS,INC./RIDGEFIELD-2013-BI-19174BP

PATIENT
  Age: 63 Year
  Sex: Male
  Weight: 117.93 kg

DRUGS (17)
  1. PRADAXA [Suspect]
     Indication: ATRIAL FIBRILLATION
     Dates: start: 20110816, end: 20111107
  2. LYRICA [Concomitant]
  3. ANDROGEL [Concomitant]
  4. ATENOLOL [Concomitant]
  5. CELEBREX [Concomitant]
  6. CRESTOR [Concomitant]
  7. CYCLOBENZAPRINE [Concomitant]
  8. CYMBALTA [Concomitant]
  9. FLECAINIDE ACETATE [Concomitant]
  10. FUROSEMIDE [Concomitant]
  11. GLYBURIDE [Concomitant]
  12. HYDROCODONE [Concomitant]
  13. OMACOR [Concomitant]
  14. METFORMIN XR [Concomitant]
  15. POTASSIUM CHLORIDE [Concomitant]
  16. TAMSULOSIN HCL [Concomitant]
  17. PROMETHAZINE [Concomitant]

REACTIONS (2)
  - Gastrointestinal haemorrhage [Unknown]
  - Rectal haemorrhage [Unknown]
